FAERS Safety Report 5466046-X (Version None)
Quarter: 2007Q3

REPORT INFORMATION
  Report Type: 
  Country: None (occurrence: None)
  Receive Date: 20070924
  Receipt Date: 20070921
  Transmission Date: 20080115
  Serious: Yes (Hospitalization)
  Sender: FDA-Public Use
  Company Number: DE-BOEHRINGER INGELHEIM PHARMACEUTICALS, INC.-2006-DE-03906DE

PATIENT
  Sex: Female
  Weight: 78 kg

DRUGS (7)
  1. SIFROL [Suspect]
     Indication: PARKINSON'S DISEASE
     Dates: start: 20060627
  2. SIFROL [Suspect]
     Indication: RESTLESSNESS
     Route: 048
  3. SIFROL [Suspect]
     Indication: DEMENTIA
  4. LEVODOPA [Concomitant]
     Indication: PARKINSON'S DISEASE
     Dates: start: 20040101
  5. LEVODOPA [Concomitant]
     Route: 048
     Dates: start: 20060711
  6. NOVODIGAL [Concomitant]
     Indication: CARDIAC FAILURE
     Dates: start: 20040101
  7. SEROQUEL [Concomitant]
     Indication: DEPRESSION
     Dates: start: 20040101

REACTIONS (2)
  - CONFUSIONAL STATE [None]
  - RESTLESSNESS [None]
